FAERS Safety Report 15385140 (Version 2)
Quarter: 2018Q4

REPORT INFORMATION
  Report Type: Spontaneous
  Country: DE (occurrence: DE)
  Receive Date: 20180914
  Receipt Date: 20181106
  Transmission Date: 20190204
  Serious: Yes (Hospitalization, Other)
  Sender: FDA-Public Use
  Company Number: PHHY2018DE092795

PATIENT
  Age: 23 Year
  Sex: Male
  Weight: 62.4 kg

DRUGS (8)
  1. AMLODIPINE [Concomitant]
     Active Substance: AMLODIPINE BESYLATE
     Indication: RENAL TRANSPLANT
     Dosage: 5 MG, QD
     Route: 048
     Dates: start: 201805, end: 201809
  2. CANDESARTAN. [Concomitant]
     Active Substance: CANDESARTAN
     Indication: RENAL TRANSPLANT
     Dosage: 16 MG, QD
     Route: 048
     Dates: start: 201807, end: 201809
  3. MYFORTIC [Suspect]
     Active Substance: MYCOPHENOLATE SODIUM
     Indication: RENAL TRANSPLANT
     Dosage: 720 MG, QD
     Route: 048
     Dates: start: 201805, end: 201808
  4. CERTICAN [Suspect]
     Active Substance: EVEROLIMUS
     Indication: RENAL TRANSPLANT
     Dosage: 1 MG, BID
     Route: 048
     Dates: start: 201808
  5. URBASON [Concomitant]
     Active Substance: METHYLPREDNISOLONE
     Indication: RENAL TRANSPLANT
     Dosage: 4 MG, QD
     Route: 065
     Dates: start: 201805
  6. COTRIM FORTE [Concomitant]
     Active Substance: SULFAMETHOXAZOLE\TRIMETHOPRIM
     Indication: RENAL TRANSPLANT
     Dosage: 960 MG, QD (PLANNED UNTIL NOV 2018)
     Route: 048
     Dates: start: 201805
  7. SANDIMMUN OPTORAL [Suspect]
     Active Substance: CYCLOSPORINE
     Indication: RENAL TRANSPLANT
     Dosage: 75 MG, QD (25 + 50 MG)
     Route: 048
     Dates: start: 20180524
  8. NEBIVOLOL. [Concomitant]
     Active Substance: NEBIVOLOL
     Indication: RENAL TRANSPLANT
     Dosage: 5 MG, QD
     Route: 048
     Dates: start: 201805

REACTIONS (10)
  - C-reactive protein increased [Recovering/Resolving]
  - Cytomegalovirus infection [Recovering/Resolving]
  - Bone pain [Not Recovered/Not Resolved]
  - Immunosuppressant drug level [Recovered/Resolved]
  - BK virus infection [Recovering/Resolving]
  - Oedema peripheral [Not Recovered/Not Resolved]
  - Bone marrow oedema [Not Recovered/Not Resolved]
  - Fatigue [Not Recovered/Not Resolved]
  - Stomatitis [Recovered/Resolved]
  - Acne [Not Recovered/Not Resolved]

NARRATIVE: CASE EVENT DATE: 201806
